FAERS Safety Report 7912477-5 (Version None)
Quarter: 2011Q4

REPORT INFORMATION
  Report Type: 
  Country: None (occurrence: None)
  Receive Date: 20111114
  Receipt Date: 20111111
  Transmission Date: 20120403
  Serious: No
  Sender: FDA-Public Use
  Company Number: US-PFIZER INC-2011277277

PATIENT
  Sex: Female

DRUGS (1)
  1. SERTRALINE HYDROCHLORIDE [Suspect]
     Indication: DEPRESSION
     Dosage: UNK
     Dates: start: 20111001

REACTIONS (3)
  - ABDOMINAL PAIN [None]
  - NAUSEA [None]
  - DRUG INEFFECTIVE [None]
